FAERS Safety Report 17375664 (Version 1)
Quarter: 2020Q1

REPORT INFORMATION
  Report Type: Spontaneous
  Country: KR (occurrence: KR)
  Receive Date: 20200206
  Receipt Date: 20200206
  Transmission Date: 20200409
  Serious: Yes (Hospitalization)
  Sender: FDA-Public Use
  Company Number: KR-HBP-2019KR020174

PATIENT
  Age: 51 Year
  Sex: Male

DRUGS (10)
  1. NICARDIPINE [Concomitant]
     Active Substance: NICARDIPINE
     Indication: HYPERTENSION
     Dosage: 1 MILLIGRAM, UNKNOWN
     Route: 042
  2. GLYCOPYRROLATE                     /00196201/ [Concomitant]
     Active Substance: GLYCOPYRRONIUM
     Indication: NEUROMUSCULAR BLOCKADE
     Dosage: 0.2 MILLIGRAM, UNKNOWN
     Route: 065
  3. PYRIDOSTIGMINE [Concomitant]
     Active Substance: PYRIDOSTIGMINE
     Indication: NEUROMUSCULAR BLOCKADE
     Dosage: 10 MILLIGRAM, UNKNOWN
     Route: 065
  4. PROPOFOL. [Concomitant]
     Active Substance: PROPOFOL
     Indication: GENERAL ANAESTHESIA
     Dosage: 2 MILLIGRAM/KILOGRAM, UNKNOWN
  5. TRAMADOL. [Concomitant]
     Active Substance: TRAMADOL
     Indication: APPENDICITIS
     Dosage: 50 MILLIGRAM, UNKNOWN
     Route: 042
  6. MEPERIDINE [Suspect]
     Active Substance: MEPERIDINE
     Dosage: 25 MILLIGRAM, UNKNOWN
     Route: 042
  7. PALONOSETRON HCL [Suspect]
     Active Substance: PALONOSETRON HYDROCHLORIDE
     Indication: PROPHYLAXIS OF NAUSEA AND VOMITING
     Dosage: UNKNOWN
     Route: 065
  8. FENTANYL. [Suspect]
     Active Substance: FENTANYL
     Indication: GENERAL ANAESTHESIA
     Dosage: 1 MICROGRAM/KILOGRAM, UNKNOWN
     Route: 065
  9. ROCURONIUM [Concomitant]
     Active Substance: ROCURONIUM BROMIDE
     Indication: GENERAL ANAESTHESIA
     Dosage: 0.6 MILLIGRAM/KILOGRAM, UNKNOWN
     Route: 065
  10. LABETALOL [Concomitant]
     Active Substance: LABETALOL\LABETALOL HYDROCHLORIDE
     Indication: HYPERTENSION
     Dosage: 2.5 MILLIGRAM, UNKNOWN
     Route: 042

REACTIONS (5)
  - Serotonin syndrome [Recovered/Resolved]
  - Agitation [Recovered/Resolved]
  - Chills [Recovered/Resolved]
  - Hyperhidrosis [Recovered/Resolved]
  - Mental impairment [Recovered/Resolved]
